FAERS Safety Report 6500456-4 (Version None)
Quarter: 2009Q4

REPORT INFORMATION
  Report Type: 
  Country: None (occurrence: None)
  Receive Date: 20091215
  Receipt Date: 20091215
  Transmission Date: 20100525
  Serious: Yes (Disabling)
  Sender: FDA-Public Use
  Company Number: None

PATIENT
  Age: 49 Year
  Sex: Female
  Weight: 68.0396 kg

DRUGS (3)
  1. ARIMIDEX [Suspect]
     Indication: BREAST CANCER
     Dosage: 1 TABLET DAILY ORAL
     Route: 048
     Dates: start: 20070801
  2. ANTIDEPRESSANT [Concomitant]
  3. BONIVA [Concomitant]

REACTIONS (2)
  - CARPAL TUNNEL SYNDROME [None]
  - GRIP STRENGTH DECREASED [None]
